FAERS Safety Report 9985374 (Version 1)
Quarter: 2014Q1

REPORT INFORMATION
  Report Type: Spontaneous
  Country: BR (occurrence: BR)
  Receive Date: 20140307
  Receipt Date: 20140307
  Transmission Date: 20141002
  Serious: Yes (Other)
  Sender: FDA-Public Use
  Company Number: BR-BAXTER-2014BAX010516

PATIENT
  Sex: Female

DRUGS (3)
  1. GENUXAL [Suspect]
     Indication: SCLERODERMA
     Route: 065
     Dates: end: 201303
  2. LIPITOR [Concomitant]
     Indication: DYSLIPIDAEMIA
     Route: 065
     Dates: start: 2006, end: 201311
  3. CELLCEPT [Concomitant]
     Indication: SCLERODERMA
     Route: 065
     Dates: start: 201303

REACTIONS (1)
  - Drug ineffective [Unknown]
